FAERS Safety Report 8249986-8 (Version None)
Quarter: 2012Q2

REPORT INFORMATION
  Report Type: 
  Country: None (occurrence: None)
  Receive Date: 20120402
  Receipt Date: 20120319
  Transmission Date: 20120825
  Serious: Yes (Other)
  Sender: FDA-Public Use
  Company Number: GB-AMGEN-GBRSP2012019020

PATIENT
  Age: 69 Year
  Sex: Male

DRUGS (5)
  1. SIMVASTATIN [Concomitant]
     Dosage: UNK
  2. HYDROXYCHLOROQUINE SULFATE [Concomitant]
     Dosage: UNK
  3. METHOTREXATE [Concomitant]
     Dosage: 20 MG, UNK
     Route: 048
  4. ENBREL [Suspect]
     Indication: RHEUMATOID ARTHRITIS
     Dosage: 50 MG, UNK
     Route: 058
     Dates: start: 20111220, end: 20120207
  5. RANITIDINE [Concomitant]
     Dosage: UNK

REACTIONS (1)
  - LIPOMA [None]
